FAERS Safety Report 23241458 (Version 1)
Quarter: 2023Q4

REPORT INFORMATION
  Report Type: Spontaneous
  Country: US (occurrence: US)
  Receive Date: 20231129
  Receipt Date: 20231129
  Transmission Date: 20240110
  Serious: Yes (Other)
  Sender: FDA-Public Use
  Company Number: US-CURIUM-2023000854

PATIENT
  Age: 38 Year
  Sex: Male

DRUGS (3)
  1. SODIUM IODIDE I-131 [Suspect]
     Active Substance: SODIUM IODIDE I-131
     Indication: Hyperthyroidism
  2. SODIUM IODIDE I-131 [Suspect]
     Active Substance: SODIUM IODIDE I-131
     Indication: Hyperthyroidism
  3. SODIUM IODIDE I-131 [Suspect]
     Active Substance: SODIUM IODIDE I-131
     Indication: Hyperthyroidism

REACTIONS (3)
  - Hypothyroidism [Unknown]
  - Thyroid cancer [Unknown]
  - Treatment failure [Unknown]
